FAERS Safety Report 4745893-3 (Version None)
Quarter: 2005Q3

REPORT INFORMATION
  Report Type: 
  Country: None (occurrence: None)
  Receive Date: 20050816
  Receipt Date: 20050705
  Transmission Date: 20060218
  Serious: Yes (Other)
  Sender: FDA-Public Use
  Company Number: 200516148US

PATIENT
  Age: 43 Year
  Sex: Female

DRUGS (7)
  1. LANTUS [Suspect]
     Indication: DIABETES MELLITUS INSULIN-DEPENDENT
     Dosage: DOSE UNIT: UNITS
  2. ACTOSE [Concomitant]
     Dosage: DOSE: NOT PROVIDED
  3. LIPITOR [Concomitant]
     Dosage: DOSE: NOT PROVIDED
  4. ALTACE [Concomitant]
     Dosage: DOSE: NOT PROVIDED
  5. BENICAR                                 /USA/ [Concomitant]
     Dosage: DOSE: NOT PROVIDED
  6. TRAVATAN [Concomitant]
     Dosage: DOSE: NOT PROVIDED
  7. LASIX [Concomitant]
     Dosage: DOSE: NOT PROVIDED

REACTIONS (1)
  - CARDIAC FAILURE CONGESTIVE [None]
